FAERS Safety Report 25739450 (Version 1)
Quarter: 2025Q3

REPORT INFORMATION
  Report Type: Spontaneous
  Country: EU (occurrence: EU)
  Receive Date: 20250829
  Receipt Date: 20250829
  Transmission Date: 20251021
  Serious: Yes (Death, Life-Threatening, Hospitalization)
  Sender: RANBAXY
  Company Number: EU-SUN PHARMACEUTICAL INDUSTRIES LTD-2025RR-524854

PATIENT
  Age: 83 Year
  Sex: Male
  Weight: 87 kg

DRUGS (9)
  1. MEROPENEM [Suspect]
     Active Substance: MEROPENEM
     Indication: Product used for unknown indication
     Dosage: 500 MILLIGRAM, BID
     Route: 040
     Dates: start: 20250410, end: 20250414
  2. TEMOZOLOMIDE [Suspect]
     Active Substance: TEMOZOLOMIDE
     Indication: Glioblastoma
     Dosage: 150 MILLIGRAM/SQ. METER, DAILY
     Route: 048
     Dates: start: 20250324, end: 20250328
  3. TEMOZOLOMIDE [Suspect]
     Active Substance: TEMOZOLOMIDE
     Dosage: 150 MILLIGRAM/SQ. METER, DAILY
     Route: 048
     Dates: start: 20250407, end: 20250410
  4. PIPERACILLIN [Suspect]
     Active Substance: PIPERACILLIN
     Indication: Pseudomonas infection
     Dosage: 4 GRAM, TID
     Route: 040
     Dates: start: 20250409, end: 20250409
  5. PIPERACILLIN [Suspect]
     Active Substance: PIPERACILLIN
     Dosage: 4 GRAM, TID
     Route: 040
     Dates: start: 20250414, end: 20250418
  6. PIPERACILLIN [Suspect]
     Active Substance: PIPERACILLIN
     Dosage: 4 GRAM, TID
     Route: 040
     Dates: start: 20250426
  7. TAZOBACTAM [Suspect]
     Active Substance: TAZOBACTAM
     Indication: Pseudomonas infection
     Dosage: 4 GRAM, TID
     Route: 040
     Dates: start: 20250409, end: 20250409
  8. TAZOBACTAM [Suspect]
     Active Substance: TAZOBACTAM
     Dosage: 4 GRAM, TID
     Route: 040
     Dates: start: 20250414, end: 20250418
  9. TAZOBACTAM [Suspect]
     Active Substance: TAZOBACTAM
     Dosage: 4 GRAM, TID
     Route: 040
     Dates: start: 20250426

REACTIONS (1)
  - Pancytopenia [Fatal]

NARRATIVE: CASE EVENT DATE: 20250412
